FAERS Safety Report 8032392-9 (Version None)
Quarter: 2012Q1

REPORT INFORMATION
  Report Type: 
  Country: None (occurrence: None)
  Receive Date: 20120109
  Receipt Date: 20120109
  Transmission Date: 20120608
  Serious: No
  Sender: FDA-Public Use
  Company Number: None

PATIENT
  Age: 50 Year
  Sex: Male
  Weight: 61.4 kg

DRUGS (1)
  1. MEGESTROL ACETATE [Suspect]
     Indication: APPETITE DISORDER
     Dosage: 5 ML EVERY DAY PO
     Route: 048
     Dates: start: 20111220, end: 20111229

REACTIONS (5)
  - RASH GENERALISED [None]
  - RASH PRURITIC [None]
  - URTICARIA [None]
  - DRUG HYPERSENSITIVITY [None]
  - ANGIOEDEMA [None]
